FAERS Safety Report 4555635-2 (Version None)
Quarter: 2005Q1

REPORT INFORMATION
  Report Type: 
  Country: None (occurrence: None)
  Receive Date: 20050111
  Receipt Date: 20040923
  Transmission Date: 20050727
  Serious: No
  Sender: FDA-Public Use
  Company Number: 2004S1000195

PATIENT
  Age: 83 Year
  Sex: Female
  Weight: 75 kg

DRUGS (8)
  1. CUBICIN [Suspect]
     Indication: INFECTION
     Dosage: 6 MG/KG;Q48H;IV
     Route: 042
     Dates: start: 20040815
  2. CUBICIN [Suspect]
     Indication: PATHOGEN RESISTANCE
     Dosage: 6 MG/KG;Q48H;IV
     Route: 042
     Dates: start: 20040815
  3. CUBICIN [Suspect]
     Indication: STAPHYLOCOCCAL BACTERAEMIA
     Dosage: 6 MG/KG;Q48H;IV
     Route: 042
     Dates: start: 20040815
  4. CUBICIN [Suspect]
     Indication: THROMBOSIS
     Dosage: 6 MG/KG;Q48H;IV
     Route: 042
     Dates: start: 20040815
  5. HEPARIN [Concomitant]
  6. LINEZOLID [Concomitant]
  7. MEROPENEM [Concomitant]
  8. FLUCONAZOLE [Concomitant]

REACTIONS (1)
  - THROMBOCYTOPENIA [None]
